FAERS Safety Report 5177414-8 (Version None)
Quarter: 2006Q4

REPORT INFORMATION
  Report Type: 
  Country: None (occurrence: None)
  Receive Date: 20061207
  Receipt Date: 20061124
  Transmission Date: 20070319
  Serious: Yes (Hospitalization)
  Sender: FDA-Public Use
  Company Number: 2006145173

PATIENT
  Age: 74 Year
  Sex: Female
  Weight: 60 kg

DRUGS (9)
  1. LYRICA [Suspect]
     Dates: start: 20060922, end: 20060925
  2. OXYCONTIN [Suspect]
  3. LEXOMIL (BROMAZEPAM) [Concomitant]
  4. FOSAMAX [Concomitant]
  5. CITALOPRAM HYDROBROMIDE [Concomitant]
  6. FENOFIBRATE [Concomitant]
  7. CALCIUM CARBONATE/COLECALCIFEROL (CALCIUM CARBONATE, COLECALCIFEROL) [Concomitant]
  8. ACETAMINOPHEN [Concomitant]
  9. FORLAX (MACROGOL) [Concomitant]

REACTIONS (7)
  - CONFUSIONAL STATE [None]
  - DRUG INTERACTION [None]
  - DRUG TOXICITY [None]
  - FACE INJURY [None]
  - FALL [None]
  - MALAISE [None]
  - PATELLA FRACTURE [None]
